FAERS Safety Report 22600514 (Version 1)
Quarter: 2023Q2

REPORT INFORMATION
  Report Type: Spontaneous
  Country: FI (occurrence: FI)
  Receive Date: 20230614
  Receipt Date: 20230614
  Transmission Date: 20230722
  Serious: Yes (Other)
  Sender: FDA-Public Use
  Company Number: FI-ABBVIE-5285419

PATIENT
  Age: 70 Year
  Sex: Female

DRUGS (1)
  1. OZURDEX [Suspect]
     Active Substance: DEXAMETHASONE
     Indication: Product used for unknown indication
     Dosage: TIME INTERVAL: AS NECESSARY
     Route: 031
     Dates: start: 20230605, end: 20230605

REACTIONS (3)
  - Intraocular pressure decreased [Unknown]
  - Injection site discharge [Unknown]
  - Eye injury [Unknown]

NARRATIVE: CASE EVENT DATE: 20230601
